FAERS Safety Report 25641243 (Version 2)
Quarter: 2025Q4

REPORT INFORMATION
  Report Type: Spontaneous
  Country: US (occurrence: US)
  Receive Date: 20250804
  Receipt Date: 20251011
  Transmission Date: 20260118
  Serious: No
  Sender: ABBVIE
  Company Number: US-ABBVIE-6392448

PATIENT

DRUGS (1)
  1. LATISSE [Suspect]
     Active Substance: BIMATOPROST
     Indication: Product used for unknown indication
     Dosage: LAST ADMIN DATE 2025
     Route: 061
     Dates: start: 2025

REACTIONS (5)
  - Erythema of eyelid [Unknown]
  - Crying [Unknown]
  - Hordeolum [Unknown]
  - Eye discharge [Unknown]
  - Eyelid infection [Unknown]
